FAERS Safety Report 6037162-9 (Version None)
Quarter: 2009Q1

REPORT INFORMATION
  Report Type: 
  Country: None (occurrence: None)
  Receive Date: 20090114
  Receipt Date: 20081120
  Transmission Date: 20090719
  Serious: Yes (Hospitalization)
  Sender: FDA-Public Use
  Company Number: FR-MERCK-0804FRA00024

PATIENT
  Age: 32 Year
  Sex: Male

DRUGS (5)
  1. ISENTRESS [Suspect]
     Indication: HIV INFECTION
     Route: 048
     Dates: start: 20070919
  2. PREZISTA [Concomitant]
     Indication: HIV INFECTION
     Route: 048
     Dates: start: 20070901
  3. NORVIR [Concomitant]
     Indication: HIV INFECTION
     Route: 048
     Dates: start: 20070901
  4. SUSTIVA [Concomitant]
     Indication: HIV INFECTION
     Route: 048
     Dates: start: 20070901
  5. TRUVADA [Concomitant]
     Indication: HIV INFECTION
     Route: 048
     Dates: start: 20061001

REACTIONS (6)
  - ABDOMINAL PAIN LOWER [None]
  - ABDOMINAL PAIN UPPER [None]
  - ALANINE AMINOTRANSFERASE DECREASED [None]
  - ASTHENIA [None]
  - GENITAL PAIN [None]
  - HAEMATOMA [None]
